FAERS Safety Report 9203614 (Version 1)
Quarter: 2013Q1

REPORT INFORMATION
  Report Type: Spontaneous
  Country: US (occurrence: None)
  Receive Date: 20130329
  Receipt Date: 20130329
  Transmission Date: 20140127
  Serious: No
  Sender: FDA-Public Use
  Company Number: B0878601A

PATIENT
  Sex: 0

DRUGS (2)
  1. MELPHALAN [Suspect]
     Indication: PLASMA CELL MYELOMA
  2. LENALIDOMIDE (LENALIDOMIDE) (CAPSULE) (LENALIDOMIDE) [Suspect]
     Indication: PLASMA CELL MYELOMA

REACTIONS (2)
  - Cholecystitis [None]
  - Toxicity to various agents [None]
